FAERS Safety Report 15741522 (Version 3)
Quarter: 2019Q3

REPORT INFORMATION
  Report Type: Spontaneous
  Country: US (occurrence: US)
  Receive Date: 20181219
  Receipt Date: 20190916
  Transmission Date: 20191004
  Serious: Yes (Other)
  Sender: FDA-Public Use
  Company Number: US-SA-2018SA343658

PATIENT
  Age: 44 Year
  Sex: Female
  Weight: 81 kg

DRUGS (11)
  1. SYMBICORT [Concomitant]
     Active Substance: BUDESONIDE\FORMOTEROL FUMARATE DIHYDRATE
     Dosage: UNK
     Dates: start: 200801
  2. PARAPLATIN [Concomitant]
     Active Substance: CARBOPLATIN
     Indication: BREAST CANCER FEMALE
  3. HERCEPTIN [Concomitant]
     Active Substance: TRASTUZUMAB
     Dosage: UNK, Q3W
     Dates: start: 20130408, end: 20130408
  4. GABAPENTIN. [Concomitant]
     Active Substance: GABAPENTIN
  5. PROVENTIL [Concomitant]
     Active Substance: ALBUTEROL
     Dosage: UNK
     Dates: start: 200801
  6. IBUPROFEN. [Concomitant]
     Active Substance: IBUPROFEN
  7. HERCEPTIN [Concomitant]
     Active Substance: TRASTUZUMAB
     Indication: BREAST CANCER FEMALE
     Dosage: UNK, Q3W
     Dates: start: 20121213, end: 20121213
  8. TAXOTERE [Suspect]
     Active Substance: DOCETAXEL
     Dosage: 137-139 MG
     Route: 042
     Dates: start: 20130408, end: 20130408
  9. PROVENTIL [Concomitant]
     Active Substance: ALBUTEROL
  10. TAXOTERE [Suspect]
     Active Substance: DOCETAXEL
     Indication: BREAST CANCER FEMALE
     Dosage: 137-139 MG
     Route: 042
     Dates: start: 20121213, end: 20121213
  11. HYDROCODONE [Concomitant]
     Active Substance: HYDROCODONE

REACTIONS (3)
  - Emotional distress [Unknown]
  - Psychological trauma [Unknown]
  - Alopecia [Recovering/Resolving]

NARRATIVE: CASE EVENT DATE: 201310
